FAERS Safety Report 20303958 (Version 1)
Quarter: 2022Q1

REPORT INFORMATION
  Report Type: Spontaneous
  Country: IN (occurrence: IN)
  Receive Date: 20220106
  Receipt Date: 20220106
  Transmission Date: 20220423
  Serious: Yes (Other)
  Sender: FDA-Public Use
  Company Number: IN-Fresenius Kabi-FK202200161

PATIENT
  Age: 42 Year
  Sex: Female
  Weight: 55 kg

DRUGS (5)
  1. RIFAMPIN [Suspect]
     Active Substance: RIFAMPIN
     Indication: Leprosy
     Route: 065
  2. CLOFAZIMINE [Suspect]
     Active Substance: CLOFAZIMINE
     Indication: Leprosy
     Route: 065
  3. PREDNISOLONE [Suspect]
     Active Substance: PREDNISOLONE
     Indication: Leprosy
     Route: 048
  4. PREDNISOLONE [Suspect]
     Active Substance: PREDNISOLONE
     Route: 048
  5. DAPSONE [Suspect]
     Active Substance: DAPSONE
     Indication: Leprosy
     Route: 065

REACTIONS (2)
  - Type 2 lepra reaction [Recovered/Resolved]
  - Drug resistance [Unknown]
